FAERS Safety Report 5409107-3 (Version None)
Quarter: 2007Q3

REPORT INFORMATION
  Report Type: 
  Country: None (occurrence: None)
  Receive Date: 20070808
  Receipt Date: 20070803
  Transmission Date: 20080115
  Serious: Yes (Death, Other)
  Sender: FDA-Public Use
  Company Number: KR-BRISTOL-MYERS SQUIBB COMPANY-13867619

PATIENT
  Age: 21 Year
  Sex: Male

DRUGS (3)
  1. AMPHOTERICIN B [Suspect]
     Indication: ANTI-INFECTIVE THERAPY
     Route: 042
  2. MEROPENEM [Suspect]
     Indication: ANTI-INFECTIVE THERAPY
     Route: 042
  3. VANCOMYCIN [Suspect]
     Indication: ANTI-INFECTIVE THERAPY
     Route: 042

REACTIONS (3)
  - HEPATIC FAILURE [None]
  - RENAL FAILURE [None]
  - SEPTIC SHOCK [None]
